FAERS Safety Report 9441128 (Version 1)
Quarter: 2013Q3

REPORT INFORMATION
  Report Type: Spontaneous
  Country: IT (occurrence: IT)
  Receive Date: 20130805
  Receipt Date: 20130805
  Transmission Date: 20140515
  Serious: Yes (Hospitalization)
  Sender: FDA-Public Use
  Company Number: IT-GLAXOSMITHKLINE-B0912031A

PATIENT
  Age: 85 Year
  Sex: Female

DRUGS (4)
  1. LEVOXACIN [Suspect]
     Indication: INFLUENZA
     Dosage: 500MG PER DAY
     Route: 048
     Dates: start: 20121105, end: 20121113
  2. PRONTINAL [Suspect]
     Indication: INFLUENZA
     Route: 065
     Dates: start: 20121105, end: 20121113
  3. OXIVENT [Suspect]
     Indication: INFLUENZA
     Route: 065
     Dates: start: 20121105, end: 20121113
  4. MEDROL [Suspect]
     Indication: INFLUENZA
     Route: 065
     Dates: start: 20121105, end: 20121113

REACTIONS (2)
  - Rash erythematous [Recovered/Resolved]
  - Urticaria [Recovered/Resolved]
